FAERS Safety Report 5156088-6 (Version None)
Quarter: 2006Q4

REPORT INFORMATION
  Report Type: 
  Country: None (occurrence: None)
  Receive Date: 20061122
  Receipt Date: 20061114
  Transmission Date: 20070319
  Serious: Yes (Other)
  Sender: FDA-Public Use
  Company Number: PHFR2006GB03402

PATIENT
  Sex: Male

DRUGS (2)
  1. TEGRETOL [Suspect]
     Indication: AFFECTIVE DISORDER
     Dosage: 100 MG, BID
     Route: 065
  2. TEGRETOL [Suspect]
     Dosage: 200 MG, BID

REACTIONS (3)
  - CIRCULATORY COLLAPSE [None]
  - CONVULSION [None]
  - WHITE BLOOD CELL COUNT DECREASED [None]
